FAERS Safety Report 6650390-4 (Version None)
Quarter: 2010Q1

REPORT INFORMATION
  Report Type: 
  Country: None (occurrence: None)
  Receive Date: 20100322
  Receipt Date: 20100309
  Transmission Date: 20100710
  Serious: Yes (Hospitalization, Disabling)
  Sender: FDA-Public Use
  Company Number: 2010AL001506

PATIENT
  Age: 68 Year
  Sex: Female

DRUGS (4)
  1. DOXAZOSIN MESYLATE [Suspect]
     Indication: HYPERTENSION
     Dosage: 2 MG; PO
     Route: 048
     Dates: start: 20091211, end: 20100219
  2. SALAZOPYRN [Concomitant]
  3. ALENDRONATE SODIUM [Concomitant]
  4. SIMVASTATIN [Concomitant]

REACTIONS (2)
  - ANAEMIA [None]
  - THROMBOCYTOPENIA [None]
